FAERS Safety Report 16003917 (Version 3)
Quarter: 2019Q1

REPORT INFORMATION
  Report Type: Spontaneous
  Country: JP (occurrence: JP)
  Receive Date: 20190226
  Receipt Date: 20190322
  Transmission Date: 20190418
  Serious: Yes (Other)
  Sender: FDA-Public Use
  Company Number: JP-SA-2019SA045555

PATIENT
  Age: 24 Year
  Sex: Female

DRUGS (2)
  1. DELLEGRA COMBINATION TABLETS [Suspect]
     Active Substance: FEXOFENADINE HYDROCHLORIDE\PSEUDOEPHEDRINE HYDROCHLORIDE
     Indication: RHINITIS ALLERGIC
     Dosage: 1 DF, BID, BEFORE BREAKFAST AND SUPPER
     Route: 048
  2. DELLEGRA COMBINATION TABLETS [Suspect]
     Active Substance: FEXOFENADINE HYDROCHLORIDE\PSEUDOEPHEDRINE HYDROCHLORIDE
     Indication: NASAL CONGESTION

REACTIONS (6)
  - Irritability [Recovered/Resolved]
  - Hyperkinesia [Recovered/Resolved]
  - Abnormal behaviour [Recovered/Resolved]
  - Intentional self-injury [Recovered/Resolved]
  - Aggression [Recovered/Resolved]
  - Mental disorder [Recovered/Resolved]
